FAERS Safety Report 5496942-9 (Version None)
Quarter: 2007Q4

REPORT INFORMATION
  Report Type: 
  Country: None (occurrence: None)
  Receive Date: 20071025
  Receipt Date: 20071022
  Transmission Date: 20080405
  Serious: Yes (Hospitalization)
  Sender: FDA-Public Use
  Company Number: A0683919A

PATIENT
  Age: 59 Year
  Sex: Male
  Weight: 95.5 kg

DRUGS (12)
  1. ARIXTRA [Suspect]
     Dosage: 2.5MG PER DAY
     Route: 058
     Dates: start: 20070922
  2. CEFAZOLIN [Concomitant]
     Route: 042
     Dates: start: 20070921, end: 20070922
  3. ASCORBIC ACID [Concomitant]
     Route: 048
     Dates: start: 20070922
  4. CELEBREX [Concomitant]
     Route: 048
     Dates: start: 20070922
  5. PERI-COLACE [Concomitant]
     Route: 048
  6. PEPCID [Concomitant]
     Route: 048
     Dates: start: 20070921
  7. LASIX [Concomitant]
     Route: 048
     Dates: start: 20070922
  8. MS CONTIN [Concomitant]
     Route: 048
     Dates: start: 20070921
  9. PRENATAL VITAMINS [Concomitant]
     Route: 048
     Dates: start: 20070922
  10. RAMIPRIL [Concomitant]
     Route: 048
     Dates: start: 20070922
  11. VICODIN [Concomitant]
     Route: 048
     Dates: start: 20070921
  12. VYTORIN [Concomitant]
     Route: 048
     Dates: start: 20070921

REACTIONS (3)
  - DEEP VEIN THROMBOSIS [None]
  - DRUG INEFFECTIVE [None]
  - PAIN IN EXTREMITY [None]
